FAERS Safety Report 13233100 (Version 1)
Quarter: 2017Q1

REPORT INFORMATION
  Report Type: Spontaneous
  Country: US (occurrence: US)
  Receive Date: 20170215
  Receipt Date: 20170215
  Transmission Date: 20170428
  Serious: Yes (Hospitalization)
  Sender: FDA-Public Use
  Company Number: US-BAXTER-2017BAX005760

PATIENT
  Age: 54 Year
  Sex: Male

DRUGS (1)
  1. TISSEEL [Suspect]
     Active Substance: FIBRINOGEN HUMAN\THROMBIN HUMAN
     Indication: DEBRIDEMENT
     Route: 065

REACTIONS (2)
  - Wound complication [Unknown]
  - Impaired healing [Unknown]

NARRATIVE: CASE EVENT DATE: 20170203
